FAERS Safety Report 10099884 (Version 2)
Quarter: 2014Q2

REPORT INFORMATION
  Report Type: Spontaneous
  Country: US (occurrence: US)
  Receive Date: 20140423
  Receipt Date: 20140423
  Transmission Date: 20141212
  Serious: No
  Sender: FDA-Public Use
  Company Number: US-GILEAD-2013-0071759

PATIENT
  Age: 16 Year
  Sex: Female

DRUGS (2)
  1. LETAIRIS [Suspect]
     Indication: PULMONARY HYPERTENSION
     Dosage: 10 MG, QD
     Dates: start: 20121031
  2. LETAIRIS [Suspect]
     Indication: SICKLE CELL ANAEMIA

REACTIONS (1)
  - Nasal congestion [Recovered/Resolved]
